FAERS Safety Report 10007341 (Version 1)
Quarter: 2014Q1

REPORT INFORMATION
  Report Type: Report from Study
  Country: US (occurrence: US)
  Receive Date: 20140313
  Receipt Date: 20140313
  Transmission Date: 20141002
  Serious: Yes (Hospitalization)
  Sender: FDA-Public Use
  Company Number: US-GLAXOSMITHKLINE-A1064397A

PATIENT
  Age: 61 Year
  Sex: Male
  Weight: 105.9 kg

DRUGS (6)
  1. ONDANSETRON [Suspect]
  2. FLUOROURACIL [Suspect]
     Indication: ADENOCARCINOMA OF COLON
     Dosage: 400MGM2 SINGLE DOSE
     Route: 042
     Dates: start: 20120321, end: 20120321
  3. PHENERGAN [Suspect]
  4. LEUCOVORIN [Concomitant]
  5. CIPRO [Concomitant]
  6. OXALIPLATIN [Concomitant]
     Dates: start: 20120321, end: 20120321

REACTIONS (1)
  - Non-alcoholic steatohepatitis [Not Recovered/Not Resolved]
